FAERS Safety Report 19266986 (Version 1)
Quarter: 2021Q2

REPORT INFORMATION
  Report Type: Spontaneous
  Country: PT (occurrence: PT)
  Receive Date: 20210518
  Receipt Date: 20210518
  Transmission Date: 20210717
  Serious: Yes (Other)
  Sender: FDA-Public Use
  Company Number: PT-AMGEN-PRTSP2021071621

PATIENT
  Age: 66 Year
  Sex: Female

DRUGS (2)
  1. DENOSUMAB [Suspect]
     Active Substance: DENOSUMAB
     Indication: NON-SMALL CELL LUNG CANCER
     Dosage: IN W:4
     Route: 058
     Dates: start: 201710
  2. ALECTINIB. [Suspect]
     Active Substance: ALECTINIB
     Indication: NON-SMALL CELL LUNG CANCER
     Dosage: WITH FOOD
     Route: 065
     Dates: start: 201710

REACTIONS (6)
  - Sinus bradycardia [Unknown]
  - Pneumonitis [Unknown]
  - Electrocardiogram QT prolonged [Unknown]
  - Therapy partial responder [Unknown]
  - Fatigue [Unknown]
  - Arthralgia [Unknown]
